FAERS Safety Report 6625833-2 (Version None)
Quarter: 2010Q1

REPORT INFORMATION
  Report Type: 
  Country: None (occurrence: None)
  Receive Date: 20100310
  Receipt Date: 20100225
  Transmission Date: 20100710
  Serious: No
  Sender: FDA-Public Use
  Company Number: US-B.I. PHARMACEUTICALS,INC./RIDGEFIELD-2009-BP-14492PF

PATIENT
  Age: 66 Year
  Sex: Female
  Weight: 80.29 kg

DRUGS (8)
  1. SPIRIVA [Suspect]
     Indication: CHRONIC OBSTRUCTIVE PULMONARY DISEASE
     Route: 055
     Dates: start: 20091116, end: 20091215
  2. ADVAIR DISKUS 100/50 [Concomitant]
     Route: 055
     Dates: start: 20091120
  3. THEOPHYLLINE [Concomitant]
  4. FOSAMAX [Concomitant]
     Dates: start: 20091112
  5. DETIASIN [Concomitant]
  6. DIFLUCAN [Concomitant]
  7. DILTIAZEM [Concomitant]
     Dosage: 240 MG
     Dates: start: 20090916
  8. ATIVAN [Concomitant]
     Dates: start: 20090910

REACTIONS (5)
  - BLOOD URINE PRESENT [None]
  - EPISTAXIS [None]
  - HAEMATOCHEZIA [None]
  - JOINT SWELLING [None]
  - OEDEMA PERIPHERAL [None]
